FAERS Safety Report 5370104-8 (Version None)
Quarter: 2007Q2

REPORT INFORMATION
  Report Type: 
  Country: None (occurrence: None)
  Receive Date: 20070626
  Receipt Date: 20070614
  Transmission Date: 20071010
  Serious: Yes (Other)
  Sender: FDA-Public Use
  Company Number: US-JNJFOC-20070603860

PATIENT
  Age: 26 Year
  Sex: Female
  Weight: 56.25 kg

DRUGS (6)
  1. TOPAMAX [Suspect]
     Route: 048
  2. TOPAMAX [Suspect]
     Route: 048
  3. TOPAMAX [Suspect]
     Route: 048
  4. TOPAMAX [Suspect]
     Dosage: TITRATED UP TO 200 MG DAILY
     Route: 048
  5. TOPAMAX [Suspect]
     Indication: EPILEPSY
     Route: 048
  6. FEMCHEW [Concomitant]
     Indication: CONTRACEPTION
     Route: 048

REACTIONS (7)
  - CONVULSION [None]
  - DISORIENTATION [None]
  - DYSPNOEA [None]
  - IRRITABILITY [None]
  - LETHARGY [None]
  - PALPITATIONS [None]
  - UNDERDOSE [None]
